FAERS Safety Report 5949444-7 (Version None)
Quarter: 2008Q4

REPORT INFORMATION
  Report Type: 
  Country: None (occurrence: None)
  Receive Date: 20081112
  Receipt Date: 20081103
  Transmission Date: 20090506
  Serious: Yes (Other)
  Sender: FDA-Public Use
  Company Number: PHHY2008GB22817

PATIENT
  Sex: Male

DRUGS (5)
  1. CLOZARIL [Suspect]
     Indication: SCHIZOPHRENIA
     Dosage: 600 MG, UNK
     Route: 048
     Dates: start: 19970924
  2. LEVOTHYROXINE SODIUM [Concomitant]
     Dosage: UNK
     Route: 048
  3. ATENOLOL [Concomitant]
     Indication: HYPERTENSION
     Dosage: 50 MG, UNK
     Route: 048
  4. LANSOPRAZOLE [Concomitant]
     Indication: DYSPEPSIA
     Dosage: 15 MG, UNK
     Route: 048
  5. MIXTARD HUMAN 70/30 [Concomitant]
     Indication: DIABETES MELLITUS
     Dosage: 38 IU, UNK
     Route: 058

REACTIONS (5)
  - CEREBROVASCULAR ACCIDENT [None]
  - DYSARTHRIA [None]
  - MONOPLEGIA [None]
  - MUSCULAR WEAKNESS [None]
  - PARAESTHESIA [None]
